FAERS Safety Report 18194448 (Version 6)
Quarter: 2020Q4

REPORT INFORMATION
  Report Type: Report from Study
  Country: JP (occurrence: JP)
  Receive Date: 20200825
  Receipt Date: 20201119
  Transmission Date: 20210113
  Serious: Yes (Hospitalization)
  Sender: FDA-Public Use
  Company Number: JP-SAKK-2020SA222863AA

PATIENT

DRUGS (10)
  1. IRINOTECAN [Suspect]
     Active Substance: IRINOTECAN
     Indication: COLON CANCER
     Dosage: 260 MG, QOW
     Route: 041
     Dates: start: 20200818
  2. IRINOTECAN [Suspect]
     Active Substance: IRINOTECAN
     Dosage: 120 MG/M2
     Route: 041
     Dates: start: 20200929
  3. METHAPAIN [Concomitant]
     Active Substance: METHADONE HYDROCHLORIDE
     Indication: CANCER PAIN
     Dosage: 15 MG, TID
     Route: 048
     Dates: end: 20200819
  4. CALCIUM LEVOFOLINATE [Suspect]
     Active Substance: LEVOLEUCOVORIN CALCIUM
     Indication: COLON CANCER
     Dosage: 347 MG, QOW
     Route: 041
     Dates: start: 20200818, end: 20200929
  5. FLUOROURACIL. [Suspect]
     Active Substance: FLUOROURACIL
     Indication: COLON CANCER
     Dosage: 4171 MG, QOW
     Route: 041
     Dates: start: 20200818, end: 20200929
  6. AFLIBERCEPT [Suspect]
     Active Substance: AFLIBERCEPT
     Indication: COLON CANCER
     Dosage: 258 MG, QOW
     Route: 041
     Dates: start: 20200818
  7. FLUOROURACIL. [Suspect]
     Active Substance: FLUOROURACIL
     Dosage: 695 MG, QOW
     Route: 040
     Dates: start: 20200818, end: 20200929
  8. BLOPRESS [Concomitant]
     Active Substance: CANDESARTAN CILEXETIL
     Indication: HYPERTENSION
     Dosage: 4 MG, QD
     Route: 048
     Dates: end: 20200819
  9. FERROMIA [Concomitant]
     Active Substance: SODIUM FERROUS CITRATE
     Indication: ANAEMIA
     Dosage: 200 MG, BID
     Route: 048
     Dates: end: 20200819
  10. SYMPROIC [Concomitant]
     Active Substance: NALDEMEDINE
     Indication: CANCER PAIN
     Dosage: 0.2 MG, QD
     Route: 048
     Dates: end: 20200819

REACTIONS (1)
  - Depressed level of consciousness [Recovering/Resolving]

NARRATIVE: CASE EVENT DATE: 20200820
